FAERS Safety Report 25344420 (Version 3)
Quarter: 2025Q3

REPORT INFORMATION
  Report Type: Report from Study
  Country: US (occurrence: US)
  Receive Date: 20250521
  Receipt Date: 20250715
  Transmission Date: 20251020
  Serious: Yes (Other)
  Sender: ABBVIE
  Company Number: US-ABBVIE-6287192

PATIENT
  Age: 81 Year
  Sex: Male

DRUGS (1)
  1. CREON [Suspect]
     Active Substance: PANCRELIPASE AMYLASE\PANCRELIPASE LIPASE\PANCRELIPASE PROTEASE
     Indication: Product used for unknown indication
     Route: 048
     Dates: start: 20240101

REACTIONS (6)
  - Biliary obstruction [Recovering/Resolving]
  - Extrasystoles [Not Recovered/Not Resolved]
  - Incision site ulcer [Not Recovered/Not Resolved]
  - Heart rate decreased [Not Recovered/Not Resolved]
  - Pancreaticoduodenectomy [Unknown]
  - Iatrogenic injury [Unknown]

NARRATIVE: CASE EVENT DATE: 20250101
